FAERS Safety Report 5261199-0 (Version None)
Quarter: 2007Q1

REPORT INFORMATION
  Report Type: 
  Country: None (occurrence: None)
  Receive Date: 20070309
  Receipt Date: 20070226
  Transmission Date: 20070707
  Serious: Yes (Disabling)
  Sender: FDA-Public Use
  Company Number: FR-PFIZER INC-2007014959

PATIENT
  Sex: Male

DRUGS (2)
  1. SALAZOPYRINE [Suspect]
     Indication: CROHN'S DISEASE
     Route: 048
     Dates: start: 19950101, end: 20030721
  2. MESALAZINE [Suspect]
     Indication: CROHN'S DISEASE
     Route: 048

REACTIONS (2)
  - INFERTILITY MALE [None]
  - SEMEN ABNORMAL [None]
